FAERS Safety Report 17082378 (Version 2)
Quarter: 2020Q1

REPORT INFORMATION
  Report Type: Report from Study
  Country: CA (occurrence: CA)
  Receive Date: 20191127
  Receipt Date: 20200205
  Transmission Date: 20200409
  Serious: Yes (Disabling, Other)
  Sender: FDA-Public Use
  Company Number: CA-SA-2019SA017253

PATIENT
  Age: 34 Year
  Sex: Female

DRUGS (9)
  1. RANITIDINE. [Concomitant]
     Active Substance: RANITIDINE
     Indication: PREMEDICATION
     Dosage: 150 MG, UNK
     Route: 048
     Dates: start: 20190115, end: 20190117
  2. TYLENOL [Concomitant]
     Active Substance: ACETAMINOPHEN
     Indication: PREMEDICATION
     Dosage: 975MG, UNK
     Route: 048
     Dates: start: 20190115, end: 20190117
  3. ALEMTUZUMAB [Suspect]
     Active Substance: ALEMTUZUMAB
     Indication: RELAPSING-REMITTING MULTIPLE SCLEROSIS
     Dosage: 12 MG, QD
     Route: 041
     Dates: start: 20190115, end: 20190117
  4. BENADRYL [Concomitant]
     Active Substance: DIPHENHYDRAMINE HYDROCHLORIDE
     Indication: PREMEDICATION
     Dosage: 50 MG, UNK
     Dates: start: 20190115, end: 20190117
  5. METHYLPREDNISOLONE. [Suspect]
     Active Substance: METHYLPREDNISOLONE
     Indication: PREMEDICATION
     Dosage: 1 G, UNK
     Route: 042
     Dates: start: 20190115, end: 20190117
  6. ADVIL [IBUPROFEN] [Concomitant]
     Active Substance: IBUPROFEN
     Dosage: UNK UNK, PRN
     Route: 048
  7. GRAVOL [Concomitant]
     Active Substance: DIMENHYDRINATE
     Indication: PREMEDICATION
     Dosage: 50 MG, UNK
     Route: 048
     Dates: start: 20190115, end: 20190117
  8. RANITIDINE. [Concomitant]
     Active Substance: RANITIDINE
     Dosage: UNK
  9. ACYCLOVIR [ACICLOVIR] [Concomitant]
     Active Substance: ACYCLOVIR
     Indication: PREMEDICATION
     Dosage: 200 MG, UNK
     Route: 048
     Dates: start: 20190115, end: 20190117

REACTIONS (25)
  - Productive cough [Recovered/Resolved]
  - Chest pain [Recovering/Resolving]
  - Lymphocyte count decreased [Unknown]
  - Asthenia [Recovering/Resolving]
  - Fatigue [Unknown]
  - Musculoskeletal pain [Recovered/Resolved]
  - Urine abnormality [Unknown]
  - Mean cell haemoglobin decreased [Unknown]
  - Gastrooesophageal reflux disease [Recovering/Resolving]
  - Erythema [Recovering/Resolving]
  - Headache [Recovered/Resolved]
  - Temperature intolerance [Recovered/Resolved]
  - Dry skin [Unknown]
  - Weight increased [Unknown]
  - Nasopharyngitis [Recovered/Resolved]
  - Pyrexia [Recovered/Resolved]
  - White blood cells urine positive [Unknown]
  - Urine leukocyte esterase positive [Unknown]
  - Hypothyroidism [Not Recovered/Not Resolved]
  - Abdominal discomfort [Recovered/Resolved]
  - Initial insomnia [Not Recovered/Not Resolved]
  - Breath sounds abnormal [Recovered/Resolved]
  - Urinary sediment present [Unknown]
  - Pain [Recovering/Resolving]
  - Bacterial test positive [Unknown]

NARRATIVE: CASE EVENT DATE: 20190115
